FAERS Safety Report 11698854 (Version 1)
Quarter: 2015Q4

REPORT INFORMATION
  Report Type: Spontaneous
  Country: KR (occurrence: KR)
  Receive Date: 20151104
  Receipt Date: 20151104
  Transmission Date: 20160304
  Serious: Yes (Death, Other)
  Sender: FDA-Public Use
  Company Number: KR-HQ SPECIALTY-KR-2015INT000620

PATIENT
  Age: 14 Year
  Sex: Male

DRUGS (3)
  1. CISPLATIN. [Suspect]
     Active Substance: CISPLATIN
     Indication: OSTEOSARCOMA
     Dosage: 120 MG/M2, ON DAY 1
  2. ALKYLATING AGENTS [Suspect]
     Active Substance: UNSPECIFIED INGREDIENT
     Indication: OSTEOSARCOMA
     Dosage: UNK
  3. DOXORUBICIN [Suspect]
     Active Substance: DOXORUBICIN
     Indication: OSTEOSARCOMA
     Dosage: 25 MG/M2, 24 HOURS FOR 3 CONSECUTIVE DAYS
     Route: 042

REACTIONS (2)
  - Metastases to lung [Fatal]
  - Metastases to abdominal wall [Unknown]
